FAERS Safety Report 4428916-0 (Version None)
Quarter: 2004Q3

REPORT INFORMATION
  Report Type: 
  Country: None (occurrence: None)
  Receive Date: 20040816
  Receipt Date: 20040802
  Transmission Date: 20050211
  Serious: Yes (Other)
  Sender: FDA-Public Use
  Company Number: 2004052204

PATIENT
  Sex: Female

DRUGS (2)
  1. GEODON [Suspect]
     Indication: PSYCHOTIC DISORDER
  2. GEODON [Suspect]
     Indication: SCHIZOPHRENIA

REACTIONS (2)
  - DELUSION [None]
  - VISUAL ACUITY REDUCED [None]
